FAERS Safety Report 11470974 (Version 3)
Quarter: 2015Q3

REPORT INFORMATION
  Report Type: Spontaneous
  Country: US (occurrence: US)
  Receive Date: 20150903
  Receipt Date: 20150910
  Transmission Date: 20151125
  Serious: Yes (Other)
  Sender: FDA-Public Use
  Company Number: US-ELI_LILLY_AND_COMPANY-US201201004328

PATIENT
  Age: 47 Year
  Sex: Female

DRUGS (3)
  1. CYMBALTA [Suspect]
     Active Substance: DULOXETINE HYDROCHLORIDE
     Indication: ANXIETY
     Dosage: 60 MG, QD
  2. CYMBALTA [Suspect]
     Active Substance: DULOXETINE HYDROCHLORIDE
     Dosage: 60 MG, QOD
     Dates: end: 20120108
  3. CLONAZEPAM. [Concomitant]
     Active Substance: CLONAZEPAM
     Indication: SLEEP DISORDER
     Dosage: UNK, EACH EVENING

REACTIONS (18)
  - Agitation [Unknown]
  - Vision blurred [Unknown]
  - Nightmare [Unknown]
  - Drug withdrawal syndrome [Unknown]
  - Paraesthesia [Unknown]
  - Insomnia [Unknown]
  - Feeling abnormal [Unknown]
  - Asthenia [Unknown]
  - Nausea [Unknown]
  - Weight decreased [Unknown]
  - Irritability [Unknown]
  - Sleep disorder [Unknown]
  - Dizziness [Unknown]
  - Mood swings [Unknown]
  - Urine odour abnormal [Unknown]
  - Vertigo [Unknown]
  - Renal disorder [Unknown]
  - Disturbance in attention [Unknown]
